FAERS Safety Report 6191234-7 (Version None)
Quarter: 2009Q2

REPORT INFORMATION
  Report Type: 
  Country: None (occurrence: None)
  Receive Date: 20090515
  Receipt Date: 20090507
  Transmission Date: 20091009
  Serious: Yes (Death, Other)
  Sender: FDA-Public Use
  Company Number: CH-BAYER-200918354GPV

PATIENT
  Age: 81 Year
  Sex: Male
  Weight: 82 kg

DRUGS (6)
  1. ULTRAVIST 300 [Suspect]
     Indication: COMPUTERISED TOMOGRAM ABDOMEN ABNORMAL
     Route: 042
     Dates: start: 20090410
  2. ATENOLOLUM [Concomitant]
     Indication: DRUG USE FOR UNKNOWN INDICATION
     Route: 048
  3. CALCIMAGON [CALCIUM CARBONATE,COLECALCIFEROL] [Concomitant]
     Indication: DRUG USE FOR UNKNOWN INDICATION
  4. SEROQUEL [Concomitant]
     Indication: DRUG USE FOR UNKNOWN INDICATION
  5. TRIATEC [Concomitant]
     Indication: DRUG USE FOR UNKNOWN INDICATION
  6. VANCOMYCIN HCL [Concomitant]
     Indication: DRUG USE FOR UNKNOWN INDICATION
     Route: 042

REACTIONS (4)
  - DEPRESSED LEVEL OF CONSCIOUSNESS [None]
  - LIVEDO RETICULARIS [None]
  - PALLOR [None]
  - PULSE ABSENT [None]
